FAERS Safety Report 8468737 (Version 14)
Quarter: 2019Q2

REPORT INFORMATION
  Report Type: Spontaneous
  Country: US (occurrence: US)
  Receive Date: 20120320
  Receipt Date: 20190425
  Transmission Date: 20190711
  Serious: Yes (Hospitalization, Disabling, Other)
  Sender: FDA-Public Use
  Company Number: US-ASTRAZENECA-2011SE32269

PATIENT
  Age: 55 Year
  Sex: Female
  Weight: 62.6 kg

DRUGS (80)
  1. NEXIUM [Suspect]
     Active Substance: ESOMEPRAZOLE MAGNESIUM
     Indication: GASTROOESOPHAGEAL REFLUX DISEASE
     Route: 048
     Dates: start: 200101, end: 200502
  2. TUMS [Concomitant]
     Active Substance: CALCIUM CARBONATE
     Indication: DYSPEPSIA
  3. KLONOPIN [Concomitant]
     Active Substance: CLONAZEPAM
     Dosage: 1.0MG UNKNOWN
     Dates: start: 20021105
  4. LASIX [Concomitant]
     Active Substance: FUROSEMIDE
     Indication: SLEEP DISORDER
     Dates: start: 20080317
  5. SPIRONOLACTONE/ALDACTONE [Concomitant]
     Route: 048
     Dates: start: 201004
  6. ACTIGALL/URSODIOL [Concomitant]
     Dates: start: 20080317
  7. PREMARIN [Concomitant]
     Active Substance: ESTROGENS, CONJUGATED
     Dates: start: 19961227
  8. PRILOSEC [Concomitant]
     Active Substance: OMEPRAZOLE MAGNESIUM
     Dates: start: 20030507
  9. FLEXERIL [Concomitant]
     Active Substance: CYCLOBENZAPRINE HYDROCHLORIDE
     Dates: start: 20021105
  10. TRAMADOL. [Concomitant]
     Active Substance: TRAMADOL
     Route: 048
     Dates: start: 20050823
  11. NEXIUM [Suspect]
     Active Substance: ESOMEPRAZOLE MAGNESIUM
     Indication: GASTROOESOPHAGEAL REFLUX DISEASE
     Route: 048
     Dates: start: 20050604
  12. KLONOPIN [Concomitant]
     Active Substance: CLONAZEPAM
     Dosage: 1.0MG UNKNOWN
     Dates: start: 20030411
  13. KLONOPIN [Concomitant]
     Active Substance: CLONAZEPAM
     Dosage: UNKNOWN
     Dates: start: 20080317
  14. SPIRONOLACTONE/ALDACTONE [Concomitant]
     Dates: start: 20060925
  15. SYNTHROID [Concomitant]
     Active Substance: LEVOTHYROXINE SODIUM
     Indication: THYROID DISORDER
     Route: 048
     Dates: start: 201004
  16. ACTIGALL/URSODIOL [Concomitant]
     Dates: start: 20060925
  17. ACTIGALL/URSODIOL [Concomitant]
     Dates: start: 20021105
  18. LEXAPRO [Concomitant]
     Active Substance: ESCITALOPRAM OXALATE
     Dates: start: 20060925
  19. FOSAMAX [Concomitant]
     Active Substance: ALENDRONATE SODIUM
     Dosage: 70 MG PER WEEK
     Dates: start: 20060925
  20. PAXIL [Concomitant]
     Active Substance: PAROXETINE HYDROCHLORIDE
     Dates: start: 20021230
  21. MILK OF MAGNESIA [Concomitant]
     Active Substance: MAGNESIUM HYDROXIDE
  22. METHYLPREDNISOLONE. [Concomitant]
     Active Substance: METHYLPREDNISOLONE
     Indication: PERIPHERAL SWELLING
     Dates: start: 2003
  23. SYNTHROID [Concomitant]
     Active Substance: LEVOTHYROXINE SODIUM
     Indication: THYROID DISORDER
     Dates: start: 20021105
  24. SYNTHROID [Concomitant]
     Active Substance: LEVOTHYROXINE SODIUM
     Indication: THYROID DISORDER
     Dates: start: 20080317
  25. ESTRACE/ESTRADIOL [Concomitant]
     Dates: start: 20080317
  26. PREMARIN [Concomitant]
     Active Substance: ESTROGENS, CONJUGATED
     Dates: start: 20060925
  27. PROVERA [Concomitant]
     Active Substance: MEDROXYPROGESTERONE ACETATE
     Dosage: 10 MG FROM FIRST THROUGH THE TENTH DAY OF THE MONTH
     Dates: start: 19961227
  28. PREVACID [Concomitant]
     Active Substance: LANSOPRAZOLE
     Dates: start: 19961227
  29. PROTONIX [Concomitant]
     Active Substance: PANTOPRAZOLE SODIUM
     Dates: start: 20021105
  30. MOBIC [Concomitant]
     Active Substance: MELOXICAM
     Route: 048
  31. PREDNISONE. [Concomitant]
     Active Substance: PREDNISONE
     Dosage: 5.0MG UNKNOWN
     Dates: start: 20010525
  32. NEXIUM [Suspect]
     Active Substance: ESOMEPRAZOLE MAGNESIUM
     Indication: GASTROOESOPHAGEAL REFLUX DISEASE
     Route: 048
     Dates: start: 20060126
  33. LASIX [Concomitant]
     Active Substance: FUROSEMIDE
     Indication: DIURETIC THERAPY
     Dates: start: 20021105
  34. LASIX [Concomitant]
     Active Substance: FUROSEMIDE
     Indication: SLEEP DISORDER
     Dates: start: 20021105
  35. ESTRACE/ESTRADIOL [Concomitant]
     Dates: start: 20021105
  36. AMITRIPTYLINE [Concomitant]
     Active Substance: AMITRIPTYLINE
     Indication: SLEEP DISORDER
     Dosage: 50.0MG UNKNOWN
     Route: 048
     Dates: start: 201004
  37. CLINDAMYCIN. [Concomitant]
     Active Substance: CLINDAMYCIN
     Indication: SINUSITIS
     Dates: start: 20021105
  38. ZAROXOLYN [Concomitant]
     Active Substance: METOLAZONE
     Dates: start: 20021105
  39. ZOCOR [Concomitant]
     Active Substance: SIMVASTATIN
     Route: 048
     Dates: start: 201004
  40. CLINORIL [Concomitant]
     Active Substance: SULINDAC
  41. SPIRONOLACTONE/ALDACTONE [Concomitant]
     Dates: start: 19961227
  42. QUESTRAN [Concomitant]
     Active Substance: CHOLESTYRAMINE
     Route: 048
     Dates: start: 201004
  43. NEXIUM [Suspect]
     Active Substance: ESOMEPRAZOLE MAGNESIUM
     Indication: GASTROOESOPHAGEAL REFLUX DISEASE
     Route: 048
     Dates: start: 2002, end: 2009
  44. NEXIUM [Suspect]
     Active Substance: ESOMEPRAZOLE MAGNESIUM
     Indication: GASTROOESOPHAGEAL REFLUX DISEASE
     Dosage: ONCE A DAY EVERYDAY
     Route: 048
     Dates: start: 2004, end: 2008
  45. NEXIUM [Suspect]
     Active Substance: ESOMEPRAZOLE MAGNESIUM
     Indication: GASTROOESOPHAGEAL REFLUX DISEASE
     Route: 048
     Dates: start: 20040101, end: 20141231
  46. KLONOPIN [Concomitant]
     Active Substance: CLONAZEPAM
     Dates: start: 19961227
  47. KLONOPIN [Concomitant]
     Active Substance: CLONAZEPAM
     Dosage: 0.5 MG 1 HS AND PRN UNKNOWN
     Dates: start: 20060925
  48. KLONOPIN [Concomitant]
     Active Substance: CLONAZEPAM
     Dosage: 0.5MG UNKNOWN
     Route: 048
     Dates: start: 201004
  49. LASIX [Concomitant]
     Active Substance: FUROSEMIDE
     Indication: DIURETIC THERAPY
     Dates: start: 20080317
  50. SPIRONOLACTONE/ALDACTONE [Concomitant]
     Dates: start: 20080317
  51. SYNTHROID [Concomitant]
     Active Substance: LEVOTHYROXINE SODIUM
     Indication: THYROID DISORDER
     Route: 048
  52. ZETIA [Concomitant]
     Active Substance: EZETIMIBE
     Dates: start: 20060925
  53. PRILOSEC [Concomitant]
     Active Substance: OMEPRAZOLE MAGNESIUM
     Dates: start: 20021217
  54. ACTONEL [Concomitant]
     Active Substance: RISEDRONATE SODIUM
     Dates: start: 20021223
  55. XENICAL [Concomitant]
     Active Substance: ORLISTAT
     Dates: start: 20030211
  56. NORCO [Concomitant]
     Active Substance: ACETAMINOPHEN\HYDROCODONE BITARTRATE
     Dosage: 5 AND 325 MG TAKE 1 TO 2
  57. PROMETHAZINE HYDROCHLORIDE. [Concomitant]
     Active Substance: PROMETHAZINE HYDROCHLORIDE
     Dosage: 1 TABLET 6-8 HRS AE PER NEED POST NAUSEA
  58. CYCLOBENZAPRINE. [Concomitant]
     Active Substance: CYCLOBENZAPRINE
     Dosage: 10.0MG UNKNOWN
     Route: 048
     Dates: start: 20051019
  59. NEXIUM [Suspect]
     Active Substance: ESOMEPRAZOLE MAGNESIUM
     Indication: GASTROOESOPHAGEAL REFLUX DISEASE
     Route: 048
     Dates: start: 20060925
  60. METHYLPREDNISOLONE. [Concomitant]
     Active Substance: METHYLPREDNISOLONE
     Indication: JOINT SWELLING
     Dates: start: 2003
  61. LASIX [Concomitant]
     Active Substance: FUROSEMIDE
     Indication: DIURETIC THERAPY
     Dates: start: 19961227
  62. LASIX [Concomitant]
     Active Substance: FUROSEMIDE
     Indication: SLEEP DISORDER
     Route: 048
     Dates: start: 201004
  63. SYNTHROID [Concomitant]
     Active Substance: LEVOTHYROXINE SODIUM
     Indication: THYROID DISORDER
     Dates: start: 19961227
  64. SYNTHROID [Concomitant]
     Active Substance: LEVOTHYROXINE SODIUM
     Indication: THYROID DISORDER
     Dates: start: 20060925
  65. ACTIGALL/URSODIOL [Concomitant]
     Route: 048
     Dates: start: 201004
  66. AMITRIPTYLINE [Concomitant]
     Active Substance: AMITRIPTYLINE
     Indication: SLEEP DISORDER
     Dosage: 10.0MG UNKNOWN
     Dates: start: 19961227
  67. AMITRIPTYLINE [Concomitant]
     Active Substance: AMITRIPTYLINE
     Indication: SLEEP DISORDER
     Dosage: 25.0MG UNKNOWN
     Dates: start: 20060925
  68. MAG-OX [Concomitant]
     Active Substance: MAGNESIUM OXIDE
     Route: 048
     Dates: start: 201004
  69. METHYLTESTOSTERONE. [Concomitant]
     Active Substance: METHYLTESTOSTERONE
     Dates: start: 20011029
  70. LASIX [Concomitant]
     Active Substance: FUROSEMIDE
     Indication: SLEEP DISORDER
     Dates: start: 19961227
  71. LASIX [Concomitant]
     Active Substance: FUROSEMIDE
     Indication: DIURETIC THERAPY
     Route: 048
     Dates: start: 201004
  72. SPIRONOLACTONE/ALDACTONE [Concomitant]
     Dates: start: 20021105
  73. ESTRACE/ESTRADIOL [Concomitant]
     Route: 048
     Dates: start: 201004
  74. AMITRIPTYLINE [Concomitant]
     Active Substance: AMITRIPTYLINE
     Indication: SLEEP DISORDER
     Dosage: UNKNOWN
     Dates: start: 20020205
  75. AMITRIPTYLINE [Concomitant]
     Active Substance: AMITRIPTYLINE
     Indication: SLEEP DISORDER
     Dosage: 50.0MG UNKNOWN
     Dates: start: 20060925
  76. CLARITIN [Concomitant]
     Active Substance: LORATADINE
     Dates: start: 20021105
  77. CELEBREX [Concomitant]
     Active Substance: CELECOXIB
     Route: 048
     Dates: start: 20021105
  78. CELEBREX [Concomitant]
     Active Substance: CELECOXIB
     Dates: start: 20010710
  79. RESTORIL [Concomitant]
     Active Substance: TEMAZEPAM
     Dosage: 30.0MG AS REQUIRED
     Route: 048
     Dates: start: 201004
  80. DARVOCET [Concomitant]
     Active Substance: ACETAMINOPHEN\PROPOXYPHENE HYDROCHLORIDE

REACTIONS (14)
  - Ankle fracture [Unknown]
  - Chronic kidney disease [Not Recovered/Not Resolved]
  - Osteoarthritis [Unknown]
  - Depression [Unknown]
  - Renal injury [Unknown]
  - Osteoporosis [Unknown]
  - Arthritis [Unknown]
  - Peripheral swelling [Unknown]
  - Lower limb fracture [Unknown]
  - Pain [Unknown]
  - Fall [Unknown]
  - Joint dislocation [Unknown]
  - Joint effusion [Unknown]
  - Cellulitis [Unknown]

NARRATIVE: CASE EVENT DATE: 2003
